FAERS Safety Report 5583064-1 (Version None)
Quarter: 2008Q1

REPORT INFORMATION
  Report Type: 
  Country: None (occurrence: None)
  Receive Date: 20080107
  Receipt Date: 20071227
  Transmission Date: 20080703
  Serious: Yes (Other)
  Sender: FDA-Public Use
  Company Number: B0500634A

PATIENT
  Age: 63 Year
  Sex: Male

DRUGS (2)
  1. FORTUM [Suspect]
     Indication: PYELONEPHRITIS
     Dosage: 1G TWICE PER DAY
     Route: 042
  2. CIPROFLOXACIN [Concomitant]
     Indication: PYELONEPHRITIS
     Dosage: 100ML TWICE PER DAY
     Route: 065

REACTIONS (4)
  - AGITATION [None]
  - IMPATIENCE [None]
  - MANIA [None]
  - RESTLESSNESS [None]
